FAERS Safety Report 7701149-8 (Version None)
Quarter: 2011Q3

REPORT INFORMATION
  Report Type: 
  Country: None (occurrence: None)
  Receive Date: 20110822
  Receipt Date: 20110812
  Transmission Date: 20111222
  Serious: Yes (Hospitalization, Other)
  Sender: FDA-Public Use
  Company Number: US-ROCHE-797797

PATIENT
  Sex: Male

DRUGS (2)
  1. RIBAVIRIN [Suspect]
     Route: 065
     Dates: start: 20100601, end: 20110802
  2. PEGINTERFERON ALFA-2A [Suspect]
     Route: 065
     Dates: start: 20100601, end: 20110802

REACTIONS (6)
  - WHITE BLOOD CELL COUNT DECREASED [None]
  - BILE DUCT OBSTRUCTION [None]
  - HEPATOMEGALY [None]
  - CELLULITIS [None]
  - SPLENOMEGALY [None]
  - PYREXIA [None]
